FAERS Safety Report 22113643 (Version 3)
Quarter: 2023Q1

REPORT INFORMATION
  Report Type: Spontaneous
  Country: CN (occurrence: CN)
  Receive Date: 20230320
  Receipt Date: 20230330
  Transmission Date: 20230418
  Serious: Yes (Death, Life-Threatening)
  Sender: FDA-Public Use
  Company Number: CN-BoehringerIngelheim-2023-BI-225245

PATIENT
  Age: 46 Year
  Sex: Male
  Weight: 60 kg

DRUGS (2)
  1. ALTEPLASE [Suspect]
     Active Substance: ALTEPLASE
     Indication: Cerebral infarction
     Dosage: 5.4 MG IV BOLUS FOR 1MIN WAS STARTED
     Route: 042
     Dates: start: 20230304, end: 20230304
  2. ALTEPLASE [Suspect]
     Active Substance: ALTEPLASE
     Dosage: 48.6 MG WAS CONTINUOUSLY PUMPED AT THE SPEED OF 48.6ML/H
     Route: 042
     Dates: start: 20230304, end: 20230304

REACTIONS (3)
  - Acute respiratory failure [Fatal]
  - Epistaxis [Unknown]
  - Upper gastrointestinal haemorrhage [Unknown]

NARRATIVE: CASE EVENT DATE: 20230304
